FAERS Safety Report 13284443 (Version 7)
Quarter: 2017Q2

REPORT INFORMATION
  Report Type: Report from Study
  Country: US (occurrence: US)
  Receive Date: 20170301
  Receipt Date: 20170412
  Transmission Date: 20170830
  Serious: Yes (Hospitalization)
  Sender: FDA-Public Use
  Company Number: US-JNJFOC-20170225010

PATIENT
  Age: 66 Year
  Sex: Female
  Weight: 63.05 kg

DRUGS (13)
  1. BUPARLISIB [Suspect]
     Active Substance: BUPARLISIB HYDROCHLORIDE
     Indication: LYMPHOMA
     Route: 048
     Dates: start: 20170206, end: 20170223
  2. CALCIUM [Concomitant]
     Active Substance: CALCIUM
     Route: 065
  3. IRON [Concomitant]
     Active Substance: IRON
     Route: 048
  4. NAPROSYN [Concomitant]
     Active Substance: NAPROXEN
     Route: 048
  5. TYLENOL [Concomitant]
     Active Substance: ACETAMINOPHEN
     Dosage: AS  NEEDED
     Route: 048
  6. SULFAMETHOXAZOLE W/TRIMETHOPRIM [Concomitant]
     Active Substance: SULFAMETHOXAZOLE\TRIMETHOPRIM
     Dosage: 1 TABLET ORALLY MONDAY, WEDNESDAY AND FRIDAY X 30 DAYS??800 MG-160 MG
     Route: 048
  7. VITAMIN B12 [Concomitant]
     Active Substance: CYANOCOBALAMIN
  8. IBRUTINIB [Suspect]
     Active Substance: IBRUTINIB
     Indication: LYMPHOMA
     Route: 048
     Dates: start: 20170306, end: 20170318
  9. VITAMIN D3 [Concomitant]
     Active Substance: CHOLECALCIFEROL
     Dosage: 1000 IU
     Route: 048
  10. IBRUTINIB [Suspect]
     Active Substance: IBRUTINIB
     Indication: LYMPHOMA
     Route: 048
     Dates: start: 20170206, end: 20170213
  11. BUPARLISIB [Suspect]
     Active Substance: BUPARLISIB HYDROCHLORIDE
     Indication: LYMPHOMA
     Route: 048
     Dates: start: 20170306, end: 20170318
  12. ONDANSETRON [Concomitant]
     Active Substance: ONDANSETRON
     Dosage: FOR 21 DAYS AS NEEDED
     Route: 048
  13. CRESTOR [Concomitant]
     Active Substance: ROSUVASTATIN CALCIUM
     Route: 048

REACTIONS (3)
  - Fall [Recovered/Resolved]
  - Lung infection [Recovered/Resolved]
  - Pleural effusion [Recovered/Resolved]

NARRATIVE: CASE EVENT DATE: 20170222
